FAERS Safety Report 5008102-6 (Version None)
Quarter: 2006Q2

REPORT INFORMATION
  Report Type: 
  Country: None (occurrence: None)
  Receive Date: 20060404
  Receipt Date: 20050707
  Transmission Date: 20061013
  Serious: Yes (Hospitalization, Other)
  Sender: FDA-Public Use
  Company Number: 2005097529

PATIENT
  Age: 49 Year
  Sex: Male

DRUGS (12)
  1. GEODON [Suspect]
     Indication: SCHIZOPHRENIA
     Dosage: ORAL
     Route: 048
     Dates: start: 20030501
  2. ARICEPT [Suspect]
     Indication: MEMORY IMPAIRMENT
     Dosage: 1 IN 1D, ORAL
     Route: 048
     Dates: end: 20050601
  3. ACETAMINOPHEN [Concomitant]
  4. BUTALBITAL, ACETAMINOPHEN + CAFFEINE (BUTALBITAL, CAFFEINE, PARACETAMO [Concomitant]
  5. ZOLMITRIPTAN (ZOLMITRIPTAN) [Concomitant]
  6. DIVALPROEX (VALPROIC ACID) [Concomitant]
  7. LISINOPRIL [Concomitant]
  8. DOCUSATE (DOCUSATE) [Concomitant]
  9. OMEPRAZOLE [Concomitant]
  10. COGENTIN [Concomitant]
  11. KLONOPIN [Concomitant]
  12. OXYBUTYNIN CHLORIDE [Concomitant]

REACTIONS (3)
  - CHEST PAIN [None]
  - HEART RATE DECREASED [None]
  - WEIGHT DECREASED [None]
